FAERS Safety Report 23504905 (Version 1)
Quarter: 2024Q1

REPORT INFORMATION
  Report Type: Spontaneous
  Country: GB (occurrence: GB)
  Receive Date: 20240209
  Receipt Date: 20240209
  Transmission Date: 20240409
  Serious: No
  Sender: FDA-Public Use
  Company Number: None

PATIENT
  Age: 64 Year
  Sex: Female
  Weight: 57 kg

DRUGS (12)
  1. GABAPENTIN [Suspect]
     Active Substance: GABAPENTIN
     Indication: Ill-defined disorder
     Dosage: UNK
     Route: 065
     Dates: start: 20230707
  2. Adcal [Concomitant]
     Indication: Ill-defined disorder
     Dosage: UNK, BID (TAKE ONE TWICE DAILY - NOT AT SAME TIME AS LEVO)
     Route: 065
     Dates: start: 20210817, end: 20230503
  3. ATORVASTATIN [Concomitant]
     Active Substance: ATORVASTATIN
     Indication: Ill-defined disorder
     Dosage: UNK, QD (TAKE ONE DAILY)
     Route: 065
     Dates: start: 20230707
  4. CHOLECALCIFEROL [Concomitant]
     Active Substance: CHOLECALCIFEROL
     Indication: Ill-defined disorder
     Dosage: UNK, BID (ONE TO BE TAKEN TO BE TAKEN TWICE DAILY)
     Route: 065
     Dates: start: 20230603
  5. GABAPENTIN [Concomitant]
     Active Substance: GABAPENTIN
     Indication: Ill-defined disorder
     Dosage: UNK, TID (TAKE ONE 3 TIMES/DAY)
     Route: 065
     Dates: start: 20230630
  6. Invita-D3 [Concomitant]
     Indication: Ill-defined disorder
     Dosage: UNK, (ADULTS ONLY TREATMENT: TAKE THE CONTENTS OF ONE)
     Route: 065
     Dates: start: 20230703
  7. LANSOPRAZOLE [Concomitant]
     Active Substance: LANSOPRAZOLE
     Indication: Ill-defined disorder
     Dosage: UNK, BID (TO BE TAKEN TWICE DAILY)
     Route: 065
     Dates: start: 20190806
  8. LEVOTHYROXINE [Concomitant]
     Active Substance: LEVOTHYROXINE\LEVOTHYROXINE SODIUM
     Indication: Ill-defined disorder
     Dosage: UNK, QD (TAKE ONE DAILY)
     Route: 065
     Dates: start: 20190610
  9. PIZOTYLINE [Concomitant]
     Active Substance: PIZOTYLINE
     Indication: Ill-defined disorder
     Dosage: UNK, HS (ONE AT NIGHT)
     Route: 065
     Dates: start: 20211026
  10. PREDNISOLONE [Concomitant]
     Active Substance: PREDNISOLONE
     Indication: Ill-defined disorder
     Dosage: UNK, QD (TAKE 6 DAILY FOR 10 DAYS)
     Route: 065
     Dates: start: 20230519, end: 20230616
  11. SUMATRIPTAN [Concomitant]
     Active Substance: SUMATRIPTAN
     Indication: Ill-defined disorder
     Dosage: 1 DOSAGE FORM (TAKE ONE TABLET AS DIRECTED, A SECOND DOSE MAYB)
     Route: 065
     Dates: start: 20220824
  12. ZOPICLONE [Concomitant]
     Active Substance: ZOPICLONE
     Indication: Ill-defined disorder
     Dosage: UNK, PRN (TAKE ONE OR TWO AT NIGHT WHEN REQUIRED)
     Route: 065
     Dates: start: 20230616, end: 20230630

REACTIONS (1)
  - Dizziness [Recovered/Resolved]

NARRATIVE: CASE EVENT DATE: 20230707
